FAERS Safety Report 7793597-5 (Version None)
Quarter: 2011Q4

REPORT INFORMATION
  Report Type: 
  Country: None (occurrence: None)
  Receive Date: 20111003
  Receipt Date: 20110918
  Transmission Date: 20120403
  Serious: Yes (Other)
  Sender: FDA-Public Use
  Company Number: US-BAYER-2011-091190

PATIENT

DRUGS (4)
  1. BISMUTH SUBSALICYLATE [Suspect]
  2. ALEVE (CAPLET) [Suspect]
  3. IBUPROFEN [Suspect]
  4. ASPIRIN [Suspect]

REACTIONS (4)
  - HYPERPYREXIA [None]
  - HEADACHE [None]
  - NAUSEA [None]
  - DIZZINESS [None]
